FAERS Safety Report 5773226-2 (Version None)
Quarter: 2008Q2

REPORT INFORMATION
  Report Type: 
  Country: None (occurrence: None)
  Receive Date: 20080613
  Receipt Date: 20080613
  Transmission Date: 20081010
  Serious: Yes (Life-Threatening, Hospitalization)
  Sender: FDA-Public Use
  Company Number: None

PATIENT
  Age: 92 Year
  Sex: Male
  Weight: 77.5 kg

DRUGS (11)
  1. CEFEPIME [Suspect]
     Indication: ABDOMINAL ABSCESS
     Dosage: 2GM Q12H IV
     Route: 042
     Dates: start: 20080512, end: 20080521
  2. FUROSEMIDE [Concomitant]
  3. ADVAIR DISKUS 100/50 [Concomitant]
  4. METOPROLOL [Concomitant]
  5. ARANESP [Concomitant]
  6. HEPARIN [Concomitant]
  7. OMEPRAZOLE [Concomitant]
  8. VANCOMYCIN [Concomitant]
  9. AMOXICILLIN [Concomitant]
  10. PROCHLORPERAZINE [Concomitant]
  11. VICODIN [Concomitant]

REACTIONS (7)
  - ASTERIXIS [None]
  - CARDIAC FAILURE CONGESTIVE [None]
  - CARDIOPULMONARY FAILURE [None]
  - HYPOGLYCAEMIA [None]
  - MYOCLONUS [None]
  - STATUS EPILEPTICUS [None]
  - TOXIC ENCEPHALOPATHY [None]
